APPROVED DRUG PRODUCT: METHYLPHENIDATE HYDROCHLORIDE
Active Ingredient: METHYLPHENIDATE HYDROCHLORIDE
Strength: 18MG
Dosage Form/Route: TABLET, EXTENDED RELEASE;ORAL
Application: A214111 | Product #001
Applicant: RHODES PHARMACEUTICALS LP
Approved: May 31, 2022 | RLD: No | RS: No | Type: DISCN